FAERS Safety Report 8758227 (Version 1)
Quarter: 2012Q4

REPORT INFORMATION
  Report Type: 
  Country: CH (occurrence: CH)
  Receive Date: 20120829
  Receipt Date: 20120829
  Transmission Date: 20130627
  Serious: Yes (Other)
  Sender: FDA-Public Use
  Company Number: CH-BAYER-2012-088817

PATIENT
  Sex: Female
  Weight: 55 kg

DRUGS (2)
  1. GYNO-CANESTEN [Suspect]
     Dosage: 1 DF, QD
     Route: 067
     Dates: start: 20120718, end: 20120720
  2. LEVOTHYROXINE [Concomitant]
     Dosage: 76 ?g, QD
     Route: 048

REACTIONS (2)
  - Vaginal discharge [Recovering/Resolving]
  - Vaginal haemorrhage [Recovering/Resolving]
